FAERS Safety Report 19742571 (Version 2)
Quarter: 2021Q3

REPORT INFORMATION
  Report Type: Spontaneous
  Country: BR (occurrence: BR)
  Receive Date: 20210824
  Receipt Date: 20210825
  Transmission Date: 20211014
  Serious: No
  Sender: FDA-Public Use
  Company Number: BR-009507513-2003BRA004899

PATIENT
  Sex: Female
  Weight: 55 kg

DRUGS (10)
  1. INDAPAMIDE. [Concomitant]
     Active Substance: INDAPAMIDE
     Indication: HYPERTENSION
     Dosage: 1.5 MILLIGRAM, ONCE IN THE MORNING
     Dates: start: 2012
  2. JANUVIA [Suspect]
     Active Substance: SITAGLIPTIN PHOSPHATE
     Indication: TYPE 2 DIABETES MELLITUS
     Dosage: 50 MILLIGRAM
     Dates: start: 20200113
  3. JANUMET [Suspect]
     Active Substance: METFORMIN HYDROCHLORIDE\SITAGLIPTIN PHOSPHATE
     Dosage: UNK
     Dates: start: 202001
  4. CLONAZEPAM. [Concomitant]
     Active Substance: CLONAZEPAM
     Indication: ANXIETY
     Dosage: 2 MILLIGRAM, ONCE DAILY
  5. FORXIGA [Concomitant]
     Active Substance: DAPAGLIFLOZIN
     Dosage: 1 DOSAGE FORM, QD
     Dates: start: 202001
  6. JANUVIA [Suspect]
     Active Substance: SITAGLIPTIN PHOSPHATE
     Dosage: 2 DOSAGE FORM, QD
     Route: 048
     Dates: start: 202002
  7. DIAMICRON [Suspect]
     Active Substance: GLICLAZIDE
     Indication: TYPE 2 DIABETES MELLITUS
     Dosage: 80 MG IN THE MORNING AND 30 MG AT NIGHT
  8. ATENOLOL. [Concomitant]
     Active Substance: ATENOLOL
     Indication: HYPERTENSION
     Dosage: 50 MILLIGRAM, ONCE BY THE MORNING
     Dates: start: 2013
  9. METFORMIN [Concomitant]
     Active Substance: METFORMIN HYDROCHLORIDE
     Dosage: 50 MILLIGRAM, FREQUENCY: TWICE A DAY: ONE BY THE MORNING AND ONE AT NIGHT
     Dates: start: 2014
  10. JANUVIA [Suspect]
     Active Substance: SITAGLIPTIN PHOSPHATE
     Dosage: ONE TABLET AFTER LUNCH; ORALLY
     Route: 048
     Dates: start: 202004

REACTIONS (13)
  - Bone pain [Not Recovered/Not Resolved]
  - Intentional dose omission [Unknown]
  - Sleep disorder [Unknown]
  - Intentional product misuse [Unknown]
  - Inappropriate schedule of product administration [Unknown]
  - Weight increased [Unknown]
  - Blood glucose increased [Unknown]
  - Pain [Unknown]
  - Nasal discomfort [Unknown]
  - Drug ineffective [Not Recovered/Not Resolved]
  - Blood glucose increased [Not Recovered/Not Resolved]
  - Weight decreased [Recovering/Resolving]
  - Product use in unapproved indication [Unknown]

NARRATIVE: CASE EVENT DATE: 202001
